FAERS Safety Report 7014924-2 (Version None)
Quarter: 2010Q3

REPORT INFORMATION
  Report Type: 
  Country: None (occurrence: None)
  Receive Date: 20100927
  Receipt Date: 20091015
  Transmission Date: 20110219
  Serious: No
  Sender: FDA-Public Use
  Company Number: US-ASTRAZENECA-2009SE20386

PATIENT

DRUGS (2)
  1. ARIMIDEX [Suspect]
     Route: 048
  2. NEXIUM [Suspect]
     Route: 048

REACTIONS (7)
  - COUGH [None]
  - FATIGUE [None]
  - GAIT DISTURBANCE [None]
  - GINGIVAL DISORDER [None]
  - LIVER DISORDER [None]
  - NAUSEA [None]
  - SLEEP APNOEA SYNDROME [None]
